FAERS Safety Report 6986714-8 (Version None)
Quarter: 2010Q3

REPORT INFORMATION
  Report Type: 
  Country: None (occurrence: None)
  Receive Date: 20100915
  Receipt Date: 20100901
  Transmission Date: 20110219
  Serious: Yes (Congenital Anomaly)
  Sender: FDA-Public Use
  Company Number: DE-MYLANLABS-2010S1016103

PATIENT

DRUGS (2)
  1. VALPROATE SODIUM [Suspect]
     Dosage: BEGINN DER GRAVIDITAT BIS 5./6.SSW
     Route: 064
     Dates: start: 20100101
  2. SEROQUEL [Suspect]
     Dosage: BEGINN DER GRAVIDITAT BIS JETZT
     Route: 064

REACTIONS (2)
  - CLEFT LIP AND PALATE [None]
  - DRUG EXPOSURE DURING PREGNANCY [None]
